FAERS Safety Report 17579153 (Version 1)
Quarter: 2020Q3

REPORT INFORMATION
  Report Type: Report from Study
  Country: GB (occurrence: GB)
  Receive Date: 20200325
  Receipt Date: 20200325
  Transmission Date: 20201104
  Serious: Yes (Other)
  Sender: FDA-Public Use
  Company Number: GB-ROCHE-2569356

PATIENT

DRUGS (4)
  1. ALENDRONATE [Suspect]
     Active Substance: ALENDRONATE SODIUM
     Indication: PERIPROSTHETIC FRACTURE
     Route: 065
  2. RISEDRONATE [Suspect]
     Active Substance: RISEDRONATE SODIUM
     Indication: PERIPROSTHETIC FRACTURE
     Route: 065
  3. IBANDRONIC ACID. [Suspect]
     Active Substance: IBANDRONIC ACID
     Indication: PERIPROSTHETIC FRACTURE
     Route: 065
  4. ETIDRONATE [Suspect]
     Active Substance: ETIDRONATE DISODIUM
     Indication: PERIPROSTHETIC FRACTURE
     Route: 065

REACTIONS (2)
  - Embolism venous [Unknown]
  - Infection [Unknown]
